FAERS Safety Report 9662517 (Version 1)
Quarter: 2013Q4

REPORT INFORMATION
  Report Type: Spontaneous
  Country: US (occurrence: US)
  Receive Date: 20131031
  Receipt Date: 20131031
  Transmission Date: 20140711
  Serious: Yes (Other)
  Sender: FDA-Public Use
  Company Number: US-NAPPMUNDI-USA-2011-0072060

PATIENT
  Sex: Female

DRUGS (3)
  1. OXYCONTIN (NDA 22-272) [Suspect]
     Indication: PRODUCT USED FOR UNKNOWN INDICATION
     Dosage: 10 MG, SEE TEXT
  2. NUVIGIL [Concomitant]
     Indication: NARCOLEPSY
     Dosage: 500 MG, AM
     Route: 048
  3. XYREM [Concomitant]
     Indication: NARCOLEPSY
     Dosage: 4.5 MG, HS
     Route: 048

REACTIONS (2)
  - Hallucination [Unknown]
  - Paranoia [Not Recovered/Not Resolved]
